FAERS Safety Report 5006618-X (Version None)
Quarter: 2006Q2

REPORT INFORMATION
  Report Type: 
  Country: None (occurrence: None)
  Receive Date: 20060516
  Receipt Date: 20060510
  Transmission Date: 20061013
  Serious: Yes (Death)
  Sender: FDA-Public Use
  Company Number: CA-2006-010133

PATIENT
  Age: 71 Year
  Sex: Male

DRUGS (2)
  1. FLUDARABINE PHOSPHAT [Suspect]
     Indication: CHRONIC LYMPHOCYTIC LEUKAEMIA
     Dosage: 50.75 MG, INTRAVENOUS
     Route: 042
     Dates: start: 20050314, end: 20050520
  2. CYCLOPHOSPHAMIDE [Suspect]
     Indication: CHRONIC LYMPHOCYTIC LEUKAEMIA
     Dosage: 379 MG, INTRAVENOUS
     Route: 042
     Dates: start: 20050314, end: 20050520

REACTIONS (13)
  - AGONAL RHYTHM [None]
  - BLOOD PH DECREASED [None]
  - BLOOD PRESSURE INCREASED [None]
  - CARDIAC ARREST [None]
  - CARDIAC DISORDER [None]
  - ELECTROMECHANICAL DISSOCIATION [None]
  - HAEMORRHAGE INTRACRANIAL [None]
  - INFLUENZA [None]
  - MYOCARDIAL INFARCTION [None]
  - PNEUMOTHORAX [None]
  - RESPIRATORY DISORDER [None]
  - SINUS TACHYCARDIA [None]
  - UNEVALUABLE EVENT [None]
